FAERS Safety Report 7636274-3 (Version None)
Quarter: 2011Q3

REPORT INFORMATION
  Report Type: 
  Country: None (occurrence: None)
  Receive Date: 20110722
  Receipt Date: 20110722
  Transmission Date: 20111222
  Serious: Yes (Other)
  Sender: FDA-Public Use
  Company Number: None

PATIENT
  Sex: Female
  Weight: 58.9676 kg

DRUGS (25)
  1. VITAMIN C 2 [Concomitant]
  2. TRIPLE OMEGA [Concomitant]
  3. RESVERATROL / POMEGRANATE / ACAI [Concomitant]
  4. TRIPLE FLEX (GLUCOSAMINE CHONDROITIN [Concomitant]
  5. NIACIN [Concomitant]
  6. TRIAMTERENE [Concomitant]
  7. FEXOFENADINE [Concomitant]
  8. ASPIRIN [Concomitant]
  9. MULTIVITIM [Concomitant]
  10. VITAMIN E [Concomitant]
  11. TUMERIC [Concomitant]
  12. SPIRULINA [Concomitant]
  13. 5-HTP [Concomitant]
  14. SUPER B-COMPLEX W/VITAMIN C AND FOLIC ACID [Concomitant]
  15. CALCIUM CITRATE [Concomitant]
  16. VITAMIN D [Concomitant]
  17. WELLESSE JOINT MOVEMENT LIQUID (GLUCOSAMINE CGONDROITIN COLLAGEN [Concomitant]
  18. METAMUCIL-2 [Concomitant]
  19. VITAMIN B-12 [Concomitant]
  20. BIOTIN (HAIR + NAILS) [Concomitant]
  21. MAGNESIUM [Concomitant]
  22. BUPROPION HCL [Suspect]
     Indication: DEPRESSION
     Dosage: 150 MG BID PO
     Route: 048
  23. BUPROPION HCL [Suspect]
     Indication: ANXIETY
     Dosage: 150 MG BID PO
     Route: 048
  24. SKELAXIN [Concomitant]
  25. COQ10 [Concomitant]

REACTIONS (4)
  - APATHY [None]
  - DEPRESSION [None]
  - LETHARGY [None]
  - PRODUCT SUBSTITUTION ISSUE [None]
